FAERS Safety Report 21701708 (Version 3)
Quarter: 2022Q4

REPORT INFORMATION
  Report Type: Spontaneous
  Country: US (occurrence: US)
  Receive Date: 20221208
  Receipt Date: 20221229
  Transmission Date: 20230112
  Serious: Yes (Other)
  Sender: FDA-Public Use
  Company Number: US-PFIZER INC-PV202200120078

PATIENT
  Age: 71 Year
  Sex: Female
  Weight: 78.005 kg

DRUGS (1)
  1. DICLOFENAC SODIUM\MISOPROSTOL [Suspect]
     Active Substance: DICLOFENAC SODIUM\MISOPROSTOL
     Dosage: UNK

REACTIONS (7)
  - Ankle operation [Unknown]
  - Therapeutic response changed [Unknown]
  - Drug ineffective [Unknown]
  - Dyspepsia [Unknown]
  - Gastrointestinal disorder [Unknown]
  - Illness [Unknown]
  - Panic reaction [Unknown]

NARRATIVE: CASE EVENT DATE: 20220810
